FAERS Safety Report 5503567-5 (Version None)
Quarter: 2007Q4

REPORT INFORMATION
  Report Type: 
  Country: None (occurrence: None)
  Receive Date: 20071029
  Receipt Date: 20071015
  Transmission Date: 20080405
  Serious: Yes (Death, Hospitalization, Other)
  Sender: FDA-Public Use
  Company Number: 2001002910-FJ

PATIENT
  Age: 12 Year
  Sex: Female
  Weight: 47 kg

DRUGS (11)
  1. TACROLIMUS [Suspect]
     Indication: RENAL TRANSPLANT
     Dosage: 13 MG, /D, ORAL; 6.5 MG, /D, ORAL
     Route: 048
     Dates: start: 20010418, end: 20010420
  2. TACROLIMUS [Suspect]
     Indication: RENAL TRANSPLANT
     Dosage: 13 MG, /D, ORAL; 6.5 MG, /D, ORAL
     Route: 048
     Dates: start: 20010424, end: 20010425
  3. PROGRAF [Suspect]
     Indication: RENAL TRANSPLANT
     Dosage: 1.84 MG, /D, IV NOS; 1.8 MG, /D, IV NOS
     Route: 042
     Dates: start: 20010420, end: 20010422
  4. PROGRAF [Suspect]
     Indication: RENAL TRANSPLANT
     Dosage: 1.84 MG, /D, IV NOS; 1.8 MG, /D, IV NOS
     Route: 042
     Dates: start: 20010423, end: 20010424
  5. PREDNISONE [Concomitant]
  6. AZATHIOPRINE [Concomitant]
  7. ALG (ANTILYMPHOCYTE IMMUNOGLOBULIN (HORSE)) [Concomitant]
  8. NICARDIPINE HYDROCHLORIDE [Concomitant]
  9. PIPERACILLIN SODIUM [Concomitant]
  10. FAMOTIDINE [Concomitant]
  11. NIFEDIPINE [Concomitant]

REACTIONS (11)
  - BRAIN OEDEMA [None]
  - COMPLEX PARTIAL SEIZURES [None]
  - CONVULSION [None]
  - DISORIENTATION [None]
  - EPILEPSY [None]
  - GRAND MAL CONVULSION [None]
  - LEUKOENCEPHALOPATHY [None]
  - LOSS OF CONSCIOUSNESS [None]
  - MEMORY IMPAIRMENT [None]
  - RESPIRATORY DEPRESSION [None]
  - TEMPORAL LOBE EPILEPSY [None]
